FAERS Safety Report 6643097-0 (Version None)
Quarter: 2010Q1

REPORT INFORMATION
  Report Type: 
  Country: None (occurrence: None)
  Receive Date: 20100319
  Receipt Date: 20100308
  Transmission Date: 20100710
  Serious: No
  Sender: FDA-Public Use
  Company Number: PHHY2010US14616

PATIENT
  Sex: Female

DRUGS (1)
  1. TASIGNA [Suspect]
     Indication: RECTAL CANCER
     Dosage: 400 MG, Q12H
     Route: 048
     Dates: start: 20091204

REACTIONS (1)
  - DRUG ADMINISTRATION ERROR [None]
